FAERS Safety Report 4702268-0 (Version None)
Quarter: 2005Q2

REPORT INFORMATION
  Report Type: 
  Country: None (occurrence: None)
  Receive Date: 20050628
  Receipt Date: 20050628
  Transmission Date: 20051028
  Serious: Yes (Other)
  Sender: FDA-Public Use
  Company Number: None

PATIENT
  Sex: Male
  Weight: 127.0072 kg

DRUGS (2)
  1. CITALOPRAM 4 MG ALPHARMA/PURPAC [Suspect]
     Indication: ANGER
     Dosage: 20 MG DAY ORAL
     Route: 048
     Dates: start: 20050521, end: 20050601
  2. CELEXA [Concomitant]

REACTIONS (3)
  - FEELING ABNORMAL [None]
  - IRRITABILITY [None]
  - PHARMACEUTICAL PRODUCT COMPLAINT [None]
